FAERS Safety Report 7928360-5 (Version None)
Quarter: 2011Q4

REPORT INFORMATION
  Report Type: 
  Country: None (occurrence: None)
  Receive Date: 20111118
  Receipt Date: 20111111
  Transmission Date: 20120403
  Serious: Yes (Other)
  Sender: FDA-Public Use
  Company Number: PHHY2011JP100373

PATIENT
  Age: 27 Year
  Sex: Female

DRUGS (2)
  1. METHOTREXATE [Suspect]
     Indication: ARTHRALGIA
     Dosage: 4 MG, QW
  2. CYCLOPHOSPHAMIDE [Suspect]

REACTIONS (8)
  - MYELODYSPLASTIC SYNDROME [None]
  - ANAEMIA [None]
  - PROTEINURIA [None]
  - LUPUS NEPHRITIS [None]
  - PYREXIA [None]
  - MYELODYSPLASTIC SYNDROME TRANSFORMATION [None]
  - HAEMATOMA [None]
  - PANCYTOPENIA [None]
